FAERS Safety Report 10190845 (Version 1)
Quarter: 2014Q2

REPORT INFORMATION
  Report Type: Spontaneous
  Country: CA (occurrence: None)
  Receive Date: 20140521
  Receipt Date: 20140521
  Transmission Date: 20141212
  Serious: No
  Sender: FDA-Public Use
  Company Number: None

PATIENT
  Age: 35 Year
  Sex: Female
  Weight: 63.5 kg

DRUGS (1)
  1. IMURAN [Suspect]
     Indication: COLITIS ULCERATIVE
     Dosage: 2 PILLS, ONCE DAILY, TAKEN BY MOUTH
     Route: 048
     Dates: start: 20140205, end: 20140226

REACTIONS (7)
  - Rash [None]
  - Chromaturia [None]
  - Alopecia [None]
  - Pyrexia [None]
  - Chills [None]
  - Arthralgia [None]
  - Hepatic enzyme increased [None]
